FAERS Safety Report 17819209 (Version 1)
Quarter: 2020Q2

REPORT INFORMATION
  Report Type: Spontaneous
  Country: FR (occurrence: FR)
  Receive Date: 20200523
  Receipt Date: 20200523
  Transmission Date: 20200714
  Serious: Yes (Hospitalization, Other)
  Sender: FDA-Public Use
  Company Number: FR-ACCORD-182573

PATIENT
  Age: 61 Year
  Sex: Male

DRUGS (3)
  1. ZOPICLONE [Suspect]
     Active Substance: ZOPICLONE
     Route: 048
     Dates: start: 20200420, end: 20200420
  2. IRBESARTAN. [Suspect]
     Active Substance: IRBESARTAN
     Route: 048
     Dates: start: 20200420, end: 20200420
  3. ESCITALOPRAM [Suspect]
     Active Substance: ESCITALOPRAM OXALATE
     Route: 048
     Dates: start: 20200420, end: 20200420

REACTIONS (4)
  - Somnolence [Recovered/Resolved]
  - Hypotension [Recovered/Resolved]
  - Toxicity to various agents [Unknown]
  - Acute kidney injury [Recovered/Resolved]

NARRATIVE: CASE EVENT DATE: 20200420
